FAERS Safety Report 4322452-8 (Version None)
Quarter: 2004Q1

REPORT INFORMATION
  Report Type: 
  Country: None (occurrence: None)
  Receive Date: 20040324
  Receipt Date: 20040311
  Transmission Date: 20041129
  Serious: Yes (Life-Threatening)
  Sender: FDA-Public Use
  Company Number: 200410872JP

PATIENT
  Age: 62 Year
  Sex: Female
  Weight: 45 kg

DRUGS (4)
  1. ARAVA [Suspect]
     Indication: RHEUMATOID ARTHRITIS
     Route: 048
     Dates: start: 20040117, end: 20040209
  2. METHOTREXATE [Concomitant]
     Route: 048
     Dates: start: 19960601, end: 20040219
  3. ALLOZYM [Concomitant]
     Route: 048
     Dates: start: 19951202, end: 20040219
  4. PREDONINE [Concomitant]
     Route: 048
     Dates: start: 20040219, end: 20040219

REACTIONS (18)
  - AGRANULOCYTOSIS [None]
  - ALANINE AMINOTRANSFERASE INCREASED [None]
  - ARTHRALGIA [None]
  - ASPARTATE AMINOTRANSFERASE INCREASED [None]
  - BLOOD ALKALINE PHOSPHATASE INCREASED [None]
  - BLOOD CALCIUM DECREASED [None]
  - BLOOD CREATININE INCREASED [None]
  - BLOOD LACTATE DEHYDROGENASE INCREASED [None]
  - BLOOD POTASSIUM INCREASED [None]
  - BLOOD SODIUM DECREASED [None]
  - BLOOD URIC ACID INCREASED [None]
  - DEHYDRATION [None]
  - GLUCOSE URINE PRESENT [None]
  - OCCULT BLOOD POSITIVE [None]
  - PROTEIN URINE PRESENT [None]
  - RENAL FAILURE [None]
  - STOMATITIS [None]
  - WHITE BLOOD CELL COUNT DECREASED [None]
